FAERS Safety Report 11009998 (Version 2)
Quarter: 2018Q4

REPORT INFORMATION
  Report Type: Report from Study
  Country: US (occurrence: US)
  Receive Date: 20150410
  Receipt Date: 20181026
  Transmission Date: 20190204
  Serious: Yes (Hospitalization, Other)
  Sender: FDA-Public Use
  Company Number: US-SANOFI-AVENTIS-2013SA075940

PATIENT
  Age: 49 Year
  Sex: Female

DRUGS (3)
  1. TERIFLUNOMIDE. [Suspect]
     Active Substance: TERIFLUNOMIDE
     Dosage: 14 MG, QD
     Route: 048
  2. TERIFLUNOMIDE. [Suspect]
     Active Substance: TERIFLUNOMIDE
     Dosage: 7 MG,QD
     Route: 048
  3. TERIFLUNOMIDE. [Suspect]
     Active Substance: TERIFLUNOMIDE
     Indication: MULTIPLE SCLEROSIS
     Dosage: 7 MG,QD
     Route: 048
     Dates: start: 20130410

REACTIONS (17)
  - Cellulitis [Unknown]
  - Dizziness [Recovered/Resolved]
  - Paraesthesia [Recovering/Resolving]
  - Peroneal nerve palsy [Unknown]
  - Nasopharyngitis [Unknown]
  - Cough [Unknown]
  - Alopecia [Recovering/Resolving]
  - Nerve injury [Unknown]
  - Multiple sclerosis relapse [Recovered/Resolved]
  - Fibromyalgia [Unknown]
  - Carpal tunnel syndrome [Unknown]
  - Hepatic enzyme abnormal [Unknown]
  - Depression [Unknown]
  - Multiple sclerosis relapse [Recovered/Resolved]
  - Decreased interest [Unknown]
  - Hypoaesthesia [Unknown]
  - Trigeminal neuralgia [Recovered/Resolved]

NARRATIVE: CASE EVENT DATE: 2013
